FAERS Safety Report 22647712 (Version 1)
Quarter: 2023Q2

REPORT INFORMATION
  Report Type: Spontaneous
  Country: DE (occurrence: DE)
  Receive Date: 20230628
  Receipt Date: 20230628
  Transmission Date: 20230722
  Serious: Yes (Death, Other)
  Sender: FDA-Public Use
  Company Number: DE-002147023-NVSC2023DE136470

PATIENT

DRUGS (15)
  1. PEMBROLIZUMAB [Suspect]
     Active Substance: PEMBROLIZUMAB
     Indication: Malignant peritoneal neoplasm
     Dosage: UNK
     Route: 065
     Dates: start: 201906, end: 2021
  2. PEMBROLIZUMAB [Suspect]
     Active Substance: PEMBROLIZUMAB
     Indication: Lymphangiosis carcinomatosa
  3. PEMBROLIZUMAB [Suspect]
     Active Substance: PEMBROLIZUMAB
     Indication: Pleural neoplasm
  4. PEMBROLIZUMAB [Suspect]
     Active Substance: PEMBROLIZUMAB
     Indication: Adenocarcinoma
  5. PEMBROLIZUMAB [Suspect]
     Active Substance: PEMBROLIZUMAB
     Indication: Bronchial carcinoma
  6. CARBOPLATIN [Suspect]
     Active Substance: CARBOPLATIN
     Indication: Adenocarcinoma
     Dosage: UNK
     Route: 065
     Dates: start: 201906, end: 201909
  7. CARBOPLATIN [Suspect]
     Active Substance: CARBOPLATIN
     Indication: Pleural neoplasm
  8. CARBOPLATIN [Suspect]
     Active Substance: CARBOPLATIN
     Indication: Lymphangiosis carcinomatosa
  9. CARBOPLATIN [Suspect]
     Active Substance: CARBOPLATIN
     Indication: Bronchial carcinoma
  10. CARBOPLATIN [Suspect]
     Active Substance: CARBOPLATIN
     Indication: Malignant peritoneal neoplasm
  11. PEMETREXED [Suspect]
     Active Substance: PEMETREXED
     Indication: Lymphangiosis carcinomatosa
     Dosage: UNK
     Route: 065
     Dates: start: 201906, end: 202003
  12. PEMETREXED [Suspect]
     Active Substance: PEMETREXED
     Indication: Bronchial carcinoma
  13. PEMETREXED [Suspect]
     Active Substance: PEMETREXED
     Indication: Malignant peritoneal neoplasm
  14. PEMETREXED [Suspect]
     Active Substance: PEMETREXED
     Indication: Adenocarcinoma
  15. PEMETREXED [Suspect]
     Active Substance: PEMETREXED
     Indication: Pleural neoplasm

REACTIONS (9)
  - Pneumonia [Unknown]
  - Product use in unapproved indication [Unknown]
  - Malignant neoplasm progression [Unknown]
  - Pleural effusion [Unknown]
  - Death [Fatal]
  - Drug resistance mutation [Unknown]
  - Bronchial carcinoma [Unknown]
  - Carpal tunnel syndrome [Unknown]
  - Adenocarcinoma [Unknown]

NARRATIVE: CASE EVENT DATE: 20190601
